FAERS Safety Report 7881026-2 (Version None)
Quarter: 2011Q4

REPORT INFORMATION
  Report Type: 
  Country: None (occurrence: None)
  Receive Date: 20111101
  Receipt Date: 20110602
  Transmission Date: 20120403
  Serious: No
  Sender: FDA-Public Use
  Company Number: US-AMGEN-USASP2011028493

PATIENT
  Sex: Male

DRUGS (1)
  1. ENBREL [Suspect]
     Indication: RHEUMATOID ARTHRITIS
     Dosage: 25 MG, 2 TIMES/WK

REACTIONS (6)
  - NAUSEA [None]
  - INJECTION SITE WARMTH [None]
  - INJECTION SITE SWELLING [None]
  - DIARRHOEA [None]
  - INJECTION SITE REACTION [None]
  - INJECTION SITE ERYTHEMA [None]
